FAERS Safety Report 12328301 (Version 1)
Quarter: 2016Q2

REPORT INFORMATION
  Report Type: Spontaneous
  Country: US (occurrence: US)
  Receive Date: 20160503
  Receipt Date: 20160503
  Transmission Date: 20160815
  Serious: Yes (Hospitalization, Other)
  Sender: FDA-Public Use
  Company Number: US-BAYER-2016-080801

PATIENT
  Sex: Female

DRUGS (1)
  1. MIRENA [Suspect]
     Active Substance: LEVONORGESTREL
     Indication: CONTRACEPTION
     Dosage: 20 MCG/24HR, CONT
     Route: 015
     Dates: start: 2013, end: 201604

REACTIONS (5)
  - Appendicectomy [None]
  - Uterine perforation [None]
  - Pelvic inflammatory disease [None]
  - Abdominal pain lower [None]
  - Procedural pain [None]

NARRATIVE: CASE EVENT DATE: 201604
